FAERS Safety Report 15824591 (Version 1)
Quarter: 2019Q1

REPORT INFORMATION
  Report Type: Spontaneous
  Country: FR (occurrence: FR)
  Receive Date: 20190115
  Receipt Date: 20190115
  Transmission Date: 20190417
  Serious: Yes (Life-Threatening, Disabling)
  Sender: FDA-Public Use
  Company Number: FR-FLAMINGO-002550

PATIENT
  Age: 61 Year
  Sex: Male

DRUGS (13)
  1. AMOXICILLIN. [Suspect]
     Active Substance: AMOXICILLIN
     Indication: BACTEROIDES INFECTION
     Route: 048
     Dates: start: 2014
  2. AMOXICILLIN. [Suspect]
     Active Substance: AMOXICILLIN
     Indication: ENTEROCOCCAL INFECTION
     Dosage: TRIPLE-ANTIBIOTIC THERAPY AND RECEIVED ON NOV-2014,2014
     Route: 048
     Dates: start: 2014
  3. SULFAMETHOXAZOLE/TRIMETHOPRIM [Suspect]
     Active Substance: SULFAMETHOXAZOLE\TRIMETHOPRIM
     Indication: PROTEUS INFECTION
     Dates: start: 201411
  4. METRONIDAZOLE. [Suspect]
     Active Substance: METRONIDAZOLE
     Indication: PROTEUS INFECTION
     Dosage: TRIPLE-ANTIBIOTIC THERAPY
     Dates: start: 201411
  5. SULFAMETHOXAZOLE/TRIMETHOPRIM [Suspect]
     Active Substance: SULFAMETHOXAZOLE\TRIMETHOPRIM
     Indication: ESCHERICHIA INFECTION
     Dates: start: 201411
  6. VANCOMYCIN [Suspect]
     Active Substance: VANCOMYCIN
     Indication: ANTIBIOTIC THERAPY
     Dosage: VANCOMYCIN-IMPREGNATED CEMENTATION
     Dates: start: 201411
  7. METRONIDAZOLE. [Suspect]
     Active Substance: METRONIDAZOLE
     Indication: ENTEROCOCCAL INFECTION
     Dates: start: 201411
  8. AMOXICILLIN. [Suspect]
     Active Substance: AMOXICILLIN
     Indication: ESCHERICHIA INFECTION
     Route: 048
     Dates: start: 2014
  9. AMOXICILLIN. [Suspect]
     Active Substance: AMOXICILLIN
     Indication: PROTEUS INFECTION
     Route: 048
     Dates: start: 2014
  10. SULFAMETHOXAZOLE/TRIMETHOPRIM [Suspect]
     Active Substance: SULFAMETHOXAZOLE\TRIMETHOPRIM
     Indication: BACTEROIDES INFECTION
     Dates: start: 201411
  11. SULFAMETHOXAZOLE/TRIMETHOPRIM [Suspect]
     Active Substance: SULFAMETHOXAZOLE\TRIMETHOPRIM
     Indication: ENTEROCOCCAL INFECTION
     Dosage: TRIPLE-ANTIBIOTIC THERAPY
     Route: 048
     Dates: start: 2014
  12. METRONIDAZOLE. [Suspect]
     Active Substance: METRONIDAZOLE
     Indication: ESCHERICHIA INFECTION
     Dates: start: 201411
  13. METRONIDAZOLE. [Suspect]
     Active Substance: METRONIDAZOLE
     Indication: BACTEROIDES INFECTION
     Dates: start: 201411

REACTIONS (2)
  - Treatment failure [Unknown]
  - Drug ineffective [Unknown]
